FAERS Safety Report 5977496-7 (Version None)
Quarter: 2008Q4

REPORT INFORMATION
  Report Type: 
  Country: None (occurrence: None)
  Receive Date: 20081203
  Receipt Date: 20081121
  Transmission Date: 20090506
  Serious: Yes (Hospitalization, Other)
  Sender: FDA-Public Use
  Company Number: US-CELGENEUS-163-20785-08111240

PATIENT
  Sex: Male

DRUGS (2)
  1. THALOMID [Suspect]
     Route: 048
     Dates: start: 20080724, end: 20080801
  2. THALOMID [Suspect]
     Route: 048
     Dates: start: 20081022

REACTIONS (1)
  - SPINAL CORD COMPRESSION [None]
